FAERS Safety Report 24768052 (Version 1)
Quarter: 2024Q4

REPORT INFORMATION
  Report Type: Spontaneous
  Country: US (occurrence: US)
  Receive Date: 20241223
  Receipt Date: 20241223
  Transmission Date: 20250114
  Serious: Yes (Hospitalization)
  Sender: BAUSCH AND LOMB
  Company Number: US-MLMSERVICE-20241210-PI284848-00117-1

PATIENT
  Age: 85 Year
  Sex: Female

DRUGS (8)
  1. DEXAMETHASONE [Suspect]
     Active Substance: DEXAMETHASONE
     Indication: Plasma cell myeloma
     Dosage: WEEKLY CYCLOPHOSPHAMIDE, BORTEZOMIB, AND DEXAMETHASONE
     Route: 065
     Dates: start: 202112, end: 20220713
  2. DEXAMETHASONE [Suspect]
     Active Substance: DEXAMETHASONE
     Dosage: MAINTENANCE THERAPY WITH LENALIDOMIDE
     Route: 065
     Dates: start: 202207, end: 202301
  3. DEXAMETHASONE [Suspect]
     Active Substance: DEXAMETHASONE
     Dosage: TREATMENT REGIMEN WAS MODIFIED TO POMALIDOMIDE,DARATUMUMAB, AND DEXAMETHASONE
     Route: 065
     Dates: start: 202301, end: 202309
  4. CYCLOPHOSPHAMIDE [Suspect]
     Active Substance: CYCLOPHOSPHAMIDE
     Indication: Plasma cell myeloma
     Dosage: WEEKLY CYCLOPHOSPHAMIDE, BORTEZOMIB, AND DEXAMETHASONE
     Route: 065
     Dates: start: 202112, end: 20220713
  5. BORTEZOMIB [Suspect]
     Active Substance: BORTEZOMIB
     Indication: Plasma cell myeloma
     Dosage: WEEKLY CYCLOPHOSPHAMIDE, BORTEZOMIB, AND DEXAMETHASONE
     Route: 065
     Dates: start: 202112, end: 20220713
  6. LENALIDOMIDE [Suspect]
     Active Substance: LENALIDOMIDE
     Indication: Plasma cell myeloma
     Dosage: MAINTENANCE THERAPY WITH DEXAMETHASONE
     Route: 065
     Dates: start: 202207, end: 202301
  7. POMALIDOMIDE [Suspect]
     Active Substance: POMALIDOMIDE
     Indication: Plasma cell myeloma
     Dosage: TREATMENT REGIMEN WAS MODIFIED TO POMALIDOMIDE, DARATUMUMAB, AND DEXAMETHASONE
     Route: 065
  8. DARATUMUMAB [Suspect]
     Active Substance: DARATUMUMAB
     Indication: Plasma cell myeloma
     Dosage: TREATMENT REGIMEN WAS MODIFIED TO POMALIDOMIDE, DARATUMUMAB, AND DEXAMETHASONE
     Route: 065
     Dates: start: 202301, end: 202309

REACTIONS (3)
  - Disease progression [Recovered/Resolved]
  - Fatigue [Unknown]
  - Treatment failure [Unknown]
